FAERS Safety Report 7610947-0 (Version None)
Quarter: 2011Q3

REPORT INFORMATION
  Report Type: 
  Country: None (occurrence: None)
  Receive Date: 20110715
  Receipt Date: 20110704
  Transmission Date: 20111222
  Serious: Yes (Death, Hospitalization, Other)
  Sender: FDA-Public Use
  Company Number: PHHY2011JP48009

PATIENT
  Sex: Male
  Weight: 61 kg

DRUGS (13)
  1. ZOMETA [Suspect]
     Indication: METASTASES TO BONE
     Dosage: 4 MG,
     Route: 041
     Dates: start: 20110518
  2. LOXONIN [Concomitant]
     Indication: CANCER PAIN
     Dosage: 180 MG, UNK
     Route: 048
     Dates: start: 20101213, end: 20110522
  3. METHYCOBAL [Concomitant]
     Dosage: 1500 MG, UNK
     Route: 048
     Dates: end: 20110518
  4. NEO-MERCAZOLE TAB [Concomitant]
     Route: 048
     Dates: end: 20110518
  5. OXYCONTIN [Suspect]
     Indication: CANCER PAIN
     Dosage: 5 MG, BID
     Route: 048
     Dates: start: 20110518, end: 20110522
  6. CONIEL [Concomitant]
     Dosage: 4 MG, UNK
     Route: 048
     Dates: end: 20110518
  7. AMARYL [Concomitant]
     Indication: DIABETES MELLITUS
     Dosage: 2 MG, UNK
     Route: 048
     Dates: end: 20110518
  8. LENDORMIN [Concomitant]
     Indication: INSOMNIA
     Dosage: 0.25 MG, UNK
     Route: 048
     Dates: start: 20101209, end: 20110522
  9. MARZULENE S [Concomitant]
     Indication: GASTRITIS
     Dosage: 1 G, UNK
     Route: 048
     Dates: start: 20110204, end: 20110518
  10. TOUGHMAC E [Concomitant]
     Indication: DYSPEPSIA
     Dosage: 3 DF, UNK
     Route: 048
     Dates: start: 20101213, end: 20110522
  11. OXINORM [Suspect]
     Indication: CANCER PAIN
     Dosage: 10 MG, DAILY
     Route: 048
     Dates: start: 20110518, end: 20110522
  12. UFT [Concomitant]
     Indication: LUNG NEOPLASM MALIGNANT
     Dosage: 400 MG, UNK
     Route: 048
     Dates: start: 20110204, end: 20110518
  13. MAGMITT [Concomitant]
     Indication: GASTRITIS
     Dosage: 990 MG, UNK
     Route: 048
     Dates: start: 20110216, end: 20110518

REACTIONS (15)
  - PLEURAL EFFUSION [None]
  - PYREXIA [None]
  - DYSPNOEA [None]
  - ANAEMIA [None]
  - NEOPLASM MALIGNANT [None]
  - HYPERCAPNIA [None]
  - NEOPLASM PROGRESSION [None]
  - MULTI-ORGAN FAILURE [None]
  - VOMITING [None]
  - DISSEMINATED INTRAVASCULAR COAGULATION [None]
  - WHITE BLOOD CELL COUNT INCREASED [None]
  - C-REACTIVE PROTEIN INCREASED [None]
  - INTERSTITIAL LUNG DISEASE [None]
  - HAEMOGLOBIN DECREASED [None]
  - DEPRESSED LEVEL OF CONSCIOUSNESS [None]
